FAERS Safety Report 8218660-6 (Version None)
Quarter: 2012Q1

REPORT INFORMATION
  Report Type: 
  Country: None (occurrence: None)
  Receive Date: 20120319
  Receipt Date: 20120309
  Transmission Date: 20120608
  Serious: Yes (Hospitalization, Other)
  Sender: FDA-Public Use
  Company Number: PHEH2012US005584

PATIENT
  Sex: Male

DRUGS (5)
  1. TEGRETOL [Suspect]
     Dosage: UNK UKN, UNK
  2. REVLIMID [Suspect]
     Indication: MULTIPLE MYELOMA
     Dosage: 25 MG, DAILY
     Route: 048
     Dates: start: 20110131
  3. REVLIMID [Suspect]
     Dosage: 5 MG, QOD
     Route: 048
     Dates: start: 20120125
  4. REVLIMID [Suspect]
     Dosage: 15MG TO 10MG DAILY
     Route: 048
     Dates: start: 20110501
  5. REVLIMID [Suspect]
     Dosage: 5 MG, EVERY DAY
     Route: 048
     Dates: start: 20111201

REACTIONS (12)
  - MALAISE [None]
  - FULL BLOOD COUNT DECREASED [None]
  - HAEMOGLOBIN DECREASED [None]
  - DECREASED APPETITE [None]
  - PANCYTOPENIA [None]
  - BLOOD IMMUNOGLOBULIN G INCREASED [None]
  - PLATELET COUNT DECREASED [None]
  - WHITE BLOOD CELL COUNT DECREASED [None]
  - CHOLELITHIASIS [None]
  - DIARRHOEA [None]
  - HAEMATOCRIT DECREASED [None]
  - PANCREATITIS [None]
